FAERS Safety Report 4655050-7 (Version None)
Quarter: 2005Q2

REPORT INFORMATION
  Report Type: 
  Country: None (occurrence: None)
  Receive Date: 20050506
  Receipt Date: 20050429
  Transmission Date: 20051028
  Serious: Yes (Other)
  Sender: FDA-Public Use
  Company Number: 2005UW06655

PATIENT
  Age: 71 Year
  Sex: Female
  Weight: 63 kg

DRUGS (4)
  1. NEXIUM [Suspect]
     Indication: DYSPEPSIA
     Route: 048
  2. PREMARIN [Concomitant]
  3. AGYSTEIN [Concomitant]
  4. CALCIUM GLUCONATE [Concomitant]

REACTIONS (20)
  - BACK PAIN [None]
  - BLOOD PRESSURE INCREASED [None]
  - BLOOD URINE PRESENT [None]
  - CHANGE OF BOWEL HABIT [None]
  - CONFUSIONAL STATE [None]
  - COUGH [None]
  - DEPRESSION [None]
  - DRY MOUTH [None]
  - EAR DISCOMFORT [None]
  - ERUCTATION [None]
  - HEART RATE INCREASED [None]
  - INCREASED UPPER AIRWAY SECRETION [None]
  - INSOMNIA [None]
  - PANCREATIC NEOPLASM [None]
  - POLLAKIURIA [None]
  - RHINORRHOEA [None]
  - URINARY TRACT INFECTION [None]
  - VISUAL DISTURBANCE [None]
  - WEIGHT DECREASED [None]
  - WEIGHT INCREASED [None]
